FAERS Safety Report 10424785 (Version 1)
Quarter: 2014Q3

REPORT INFORMATION
  Report Type: Spontaneous
  Country: US (occurrence: None)
  Receive Date: 20140722
  Receipt Date: 20140722
  Transmission Date: 20150326
  Serious: No
  Sender: FDA-Public Use
  Company Number: 163-10004-14061053

PATIENT
  Age: 56 Year
  Sex: Female

DRUGS (23)
  1. FISH OIL [Concomitant]
     Active Substance: FISH OIL
  2. LYRICA [Concomitant]
     Active Substance: PREGABALIN
  3. NEXIUM [Concomitant]
     Active Substance: ESOMEPRAZOLE MAGNESIUM
  4. LIBRAX [Concomitant]
     Active Substance: CHLORDIAZEPOXIDE HYDROCHLORIDE\CLIDINIUM BROMIDE
  5. SOMA [Concomitant]
     Active Substance: CARISOPRODOL
  6. REGLAN [Concomitant]
     Active Substance: METOCLOPRAMIDE HYDROCHLORIDE
  7. NYAMYC (NYSTATIN) [Concomitant]
  8. SUPARTZ (HYALURONATE SODIUM) [Concomitant]
  9. ACCUPRIL [Concomitant]
     Active Substance: QUINAPRIL HYDROCHLORIDE
  10. METOPROLOL [Concomitant]
     Active Substance: METOPROLOL
  11. OXYMORPHONE [Concomitant]
     Active Substance: OXYMORPHONE
  12. XANAX [Concomitant]
     Active Substance: ALPRAZOLAM
  13. ACYCLOVIR (ACICLOVIR) (ACICLOVIR) [Concomitant]
     Active Substance: ACYCLOVIR
  14. DONNATAL [Concomitant]
     Active Substance: ATROPINE SULFATE\HYOSCYAMINE SULFATE\PHENOBARBITAL\SCOPOLAMINE HYDROBROMIDE
  15. HYDROXYZINE [Concomitant]
     Active Substance: HYDROXYZINE\HYDROXYZINE HYDROCHLORIDE
  16. OPANA (OXYMORPHONE HYDROCHLORIDE) [Concomitant]
  17. CYMBALTA [Concomitant]
     Active Substance: DULOXETINE HYDROCHLORIDE
  18. OTEZLA [Suspect]
     Active Substance: APREMILAST
     Indication: PRODUCT USED FOR UNKNOWN INDICATION
     Route: 048
  19. ACIDOPHILUS (LACTOBACILLUS ACIDOPHILUS) [Concomitant]
  20. NAPROXEN. [Concomitant]
     Active Substance: NAPROXEN
  21. ORPHENADRINE [Concomitant]
     Active Substance: ORPHENADRINE
  22. KETOCONAZOLE. [Concomitant]
     Active Substance: KETOCONAZOLE
  23. SPIRIVA [Concomitant]
     Active Substance: TIOTROPIUM BROMIDE MONOHYDRATE

REACTIONS (1)
  - Fatigue [None]
